FAERS Safety Report 4837119-7 (Version None)
Quarter: 2005Q4

REPORT INFORMATION
  Report Type: 
  Country: None (occurrence: None)
  Receive Date: 20051122
  Receipt Date: 20051104
  Transmission Date: 20060501
  Serious: Yes (Other)
  Sender: FDA-Public Use
  Company Number: 219577

PATIENT
  Sex: Female

DRUGS (3)
  1. AVASTIN [Suspect]
     Indication: BREAST CANCER
     Dates: start: 20040601
  2. HERCEPTIN [Suspect]
     Indication: BREAST CANCER
  3. CAMPTOSAR [Concomitant]

REACTIONS (1)
  - ASCITES [None]
